FAERS Safety Report 6018253-5 (Version None)
Quarter: 2008Q4

REPORT INFORMATION
  Report Type: 
  Country: None (occurrence: None)
  Receive Date: 20081223
  Receipt Date: 20081215
  Transmission Date: 20090506
  Serious: Yes (Other)
  Sender: FDA-Public Use
  Company Number: PHEH2006US13529

PATIENT
  Sex: Female

DRUGS (3)
  1. ZOMETA [Suspect]
     Indication: MULTIPLE MYELOMA
     Dosage: UNK Q4WK
     Route: 042
     Dates: start: 20030101
  2. AREDIA [Suspect]
  3. CHEMOTHERAPEUTICS,OTHER [Concomitant]
     Dates: start: 20030101

REACTIONS (9)
  - BONE DISORDER [None]
  - DENTAL CARE [None]
  - GINGIVAL DISORDER [None]
  - IMPAIRED HEALING [None]
  - JAW DISORDER [None]
  - MASTICATION DISORDER [None]
  - OSTEONECROSIS [None]
  - PAIN IN JAW [None]
  - TOOTH EXTRACTION [None]
